FAERS Safety Report 4686243-0 (Version None)
Quarter: 2005Q2

REPORT INFORMATION
  Report Type: 
  Country: None (occurrence: None)
  Receive Date: 20050609
  Receipt Date: 20050127
  Transmission Date: 20051028
  Serious: Yes (Hospitalization)
  Sender: FDA-Public Use
  Company Number: JP-GLAXOSMITHKLINE-B0369303A

PATIENT
  Age: 65 Year
  Sex: Female
  Weight: 40.1 kg

DRUGS (4)
  1. ZOVIRAX [Suspect]
     Indication: ENCEPHALITIS HERPES
     Dosage: 250MG PER DAY
     Route: 042
     Dates: start: 20050119, end: 20050121
  2. FUNGUARD [Suspect]
     Indication: FUNGAL INFECTION
     Dosage: 150MG PER DAY
     Route: 042
     Dates: start: 20050118, end: 20050131
  3. PANSPORIN [Suspect]
     Indication: BACTERIAL INFECTION
     Dosage: 1G PER DAY
     Route: 042
     Dates: start: 20050118, end: 20050124
  4. IODOCAPSULE 123 [Concomitant]

REACTIONS (5)
  - CONVULSION [None]
  - DEPRESSED LEVEL OF CONSCIOUSNESS [None]
  - DIALYSIS [None]
  - MYDRIASIS [None]
  - SOMNOLENCE [None]
